FAERS Safety Report 24284877 (Version 11)
Quarter: 2025Q2

REPORT INFORMATION
  Report Type: Spontaneous
  Country: US (occurrence: US)
  Receive Date: 20240905
  Receipt Date: 20250602
  Transmission Date: 20250717
  Serious: Yes (Other)
  Sender: BRISTOL-MYERS SQUIBB COMPANY
  Company Number: US-BRISTOL-MYERS SQUIBB COMPANY-2024-140923

PATIENT
  Age: 73 Year
  Sex: Female

DRUGS (6)
  1. REVLIMID [Suspect]
     Active Substance: LENALIDOMIDE
     Indication: Plasma cell myeloma
     Route: 048
  2. REVLIMID [Suspect]
     Active Substance: LENALIDOMIDE
     Route: 048
  3. REVLIMID [Suspect]
     Active Substance: LENALIDOMIDE
     Route: 048
  4. REVLIMID [Suspect]
     Active Substance: LENALIDOMIDE
     Dosage: TAKE 1 CAPSULE (10 MG TOTAL) BY MOUTH ONCE DAILY FOR 21 DAYS FOLLOWED BY 7 DAYS OFF
     Route: 048
  5. REVLIMID [Suspect]
     Active Substance: LENALIDOMIDE
     Dosage: TAKE 1 CAPSULE BY MOUTH EVERY DAY FOR 21 DAYS FOLLOWED BY 7 DAYS OFF
     Route: 048
  6. REVLIMID [Suspect]
     Active Substance: LENALIDOMIDE
     Dosage: TAKE 1 CAPSULE BY MOUTH EVERY DAY FOR 21 DAYS, FOLLOWED BY 7 DAYS OFF FOR 28 DAY
     Route: 048

REACTIONS (31)
  - Rash [Unknown]
  - Gastroenteritis viral [Not Recovered/Not Resolved]
  - Nasopharyngitis [Recovering/Resolving]
  - Malaise [Recovering/Resolving]
  - Tooth disorder [Recovering/Resolving]
  - Oral pain [Recovering/Resolving]
  - Insurance issue [Unknown]
  - Therapy interrupted [Unknown]
  - Skin discolouration [Not Recovered/Not Resolved]
  - Bone pain [Recovering/Resolving]
  - Abdominal discomfort [Recovering/Resolving]
  - Pain [Unknown]
  - Fatigue [Unknown]
  - Constipation [Unknown]
  - Alopecia [Unknown]
  - Abdominal pain upper [Unknown]
  - Flatulence [Unknown]
  - Depression [Unknown]
  - Mood altered [Unknown]
  - Feeling jittery [Unknown]
  - Anger [Unknown]
  - Blood pressure abnormal [Unknown]
  - Weight increased [Unknown]
  - Restlessness [Unknown]
  - Product use issue [Unknown]
  - Rotator cuff syndrome [Unknown]
  - Anxiety [Unknown]
  - Sinusitis [Not Recovered/Not Resolved]
  - Faeces discoloured [Not Recovered/Not Resolved]
  - Drug ineffective [Recovered/Resolved]
  - Peripheral swelling [Not Recovered/Not Resolved]

NARRATIVE: CASE EVENT DATE: 20240101
